FAERS Safety Report 17440473 (Version 1)
Quarter: 2020Q1

REPORT INFORMATION
  Report Type: Spontaneous
  Country: US (occurrence: US)
  Receive Date: 20200220
  Receipt Date: 20200220
  Transmission Date: 20200409
  Serious: Yes (Disabling)
  Sender: FDA-Public Use
  Company Number: None

PATIENT
  Age: 49 Year
  Sex: Female
  Weight: 95.4 kg

DRUGS (4)
  1. GENERAL HEALTH PROBIOTIC [Concomitant]
  2. LUPRON [Suspect]
     Active Substance: LEUPROLIDE ACETATE
     Indication: ENDOMETRIOSIS
     Dosage: ?          QUANTITY:1 INJECTION(S);OTHER FREQUENCY:MONTHLY;?
     Route: 030
     Dates: start: 20170307, end: 20170407
  3. IRWIN NATURALS LIVING GREEN WOMEN^S MULTIVITAMIN [Concomitant]
  4. ELDERBERRY GUMMY [Concomitant]

REACTIONS (21)
  - Skin exfoliation [None]
  - Diverticulitis [None]
  - Nausea [None]
  - Visual impairment [None]
  - Dermatitis allergic [None]
  - Stress [None]
  - Burning sensation [None]
  - Hot flush [None]
  - Chronic gastritis [None]
  - Dizziness [None]
  - Migraine [None]
  - Fatigue [None]
  - Ulcer [None]
  - Night sweats [None]
  - Irritable bowel syndrome [None]
  - Anxiety [None]
  - Muscle spasms [None]
  - Back pain [None]
  - Depression [None]
  - Hypoaesthesia [None]
  - Neck pain [None]

NARRATIVE: CASE EVENT DATE: 20170307
